FAERS Safety Report 6241555-4 (Version None)
Quarter: 2009Q2

REPORT INFORMATION
  Report Type: 
  Country: None (occurrence: None)
  Receive Date: 20090623
  Receipt Date: 20090609
  Transmission Date: 20091009
  Serious: Yes (Hospitalization)
  Sender: FDA-Public Use
  Company Number: AU-GENENTECH-282953

PATIENT
  Sex: Female

DRUGS (4)
  1. TRASTUZUMAB [Suspect]
     Indication: BREAST CANCER
     Dosage: 4 MG/KG, UNK
     Route: 042
  2. TRASTUZUMAB [Suspect]
     Dosage: 2 MG/KG, UNK
  3. DOCETAXEL [Suspect]
     Indication: BREAST CANCER
     Dosage: 75 MG/M2, Q3W
     Route: 042
     Dates: end: 20081125
  4. GEMCITABINE [Suspect]
     Indication: BREAST CANCER
     Dosage: 1000 MG/M2, DAY1+8/Q3W
     Route: 042
     Dates: end: 20081125

REACTIONS (2)
  - DEHYDRATION [None]
  - FATIGUE [None]
